FAERS Safety Report 8809605 (Version 1)
Quarter: 2012Q4

REPORT INFORMATION
  Report Type: 
  Country: US (occurrence: US)
  Receive Date: 20120926
  Receipt Date: 20120926
  Transmission Date: 20130627
  Serious: Yes (Other)
  Sender: FDA-Public Use
  Company Number: US-ROCHE-1129231

PATIENT
  Sex: Male

DRUGS (5)
  1. AVASTIN [Suspect]
     Indication: LUNG NEOPLASM MALIGNANT
     Route: 065
  2. TAXOL [Concomitant]
  3. ALIMTA [Concomitant]
  4. GEMZAR [Concomitant]
  5. CISPLATIN [Concomitant]

REACTIONS (8)
  - Metastases to liver [Unknown]
  - Metastases to peritoneum [Unknown]
  - Ascites [Unknown]
  - Neuropathy peripheral [Unknown]
  - Abdominal distension [Unknown]
  - Nausea [Unknown]
  - Vomiting [Unknown]
  - Asthenia [Unknown]
